FAERS Safety Report 7782625-9 (Version None)
Quarter: 2011Q3

REPORT INFORMATION
  Report Type: 
  Country: None (occurrence: None)
  Receive Date: 20110928
  Receipt Date: 20110920
  Transmission Date: 20111222
  Serious: Yes (Disabling)
  Sender: FDA-Public Use
  Company Number: GR-AMGEN-GRCSP2011048657

PATIENT
  Age: 65 Year
  Sex: Female

DRUGS (4)
  1. COAPROVEL 150/12.5 [Concomitant]
     Indication: HYPERTENSION
     Dosage: UNK
  2. T4 [Concomitant]
     Dosage: UNK
  3. PROLIA [Suspect]
     Indication: OSTEOPOROSIS
     Dosage: UNK
  4. CALCIUM CARBONATE [Concomitant]
     Dosage: UNK

REACTIONS (2)
  - LENTICULAR OPACITIES [None]
  - CATARACT [None]
